FAERS Safety Report 18914898 (Version 1)
Quarter: 2021Q1

REPORT INFORMATION
  Report Type: Spontaneous
  Country: US (occurrence: US)
  Receive Date: 20210218
  Receipt Date: 20210218
  Transmission Date: 20210420
  Serious: Yes (Hospitalization, Other)
  Sender: FDA-Public Use
  Company Number: US-GILEAD-2021-0517713

PATIENT
  Age: 49 Year
  Sex: Male
  Weight: 99.9 kg

DRUGS (3)
  1. ELIQUIS [Concomitant]
     Active Substance: APIXABAN
     Dosage: UNK
     Dates: end: 20210201
  2. YESCARTA [Suspect]
     Active Substance: AXICABTAGENE CILOLEUCEL
     Indication: LYMPHOMA
     Dosage: 2 X 10^6 ANTI?CD19 CAR?T CELLS/KG
     Route: 042
     Dates: start: 20210125, end: 20210125
  3. KEPPRA [Concomitant]
     Active Substance: LEVETIRACETAM
     Dosage: 2 MG

REACTIONS (3)
  - Neurotoxicity [Recovered/Resolved]
  - Cytokine release syndrome [Recovered/Resolved]
  - Neutropenia [Unknown]

NARRATIVE: CASE EVENT DATE: 20210127
